FAERS Safety Report 7394509-9 (Version None)
Quarter: 2011Q2

REPORT INFORMATION
  Report Type: 
  Country: None (occurrence: None)
  Receive Date: 20110405
  Receipt Date: 20110323
  Transmission Date: 20111010
  Serious: Yes (Death)
  Sender: FDA-Public Use
  Company Number: GB-ROCHE-769153

PATIENT
  Weight: 53 kg

DRUGS (13)
  1. NICORANDIL [Concomitant]
  2. ISPAGHULA [Concomitant]
  3. ISOTARD [Concomitant]
  4. ADCAL D3 [Concomitant]
  5. NITROLINGUAL [Concomitant]
  6. OMEPRAZOLE [Concomitant]
  7. BISOPROLOL FUMARATE [Concomitant]
  8. DIMETICONE ALUMINIUM HYDROXIDE [Concomitant]
     Dosage: DRUG NAME REPORTED WAS DIMETICONE.
  9. BENZALKONIUM CHLORIDE [Concomitant]
  10. BEVACIZUMAB [Suspect]
     Dosage: UNK
     Route: 065
     Dates: start: 20100621
  11. MAALOX (CALCIUM CARBONATE) [Concomitant]
  12. SOLIFENACIN [Concomitant]
  13. ACETAMINOPHEN AND CODEINE PHOSPHATE [Concomitant]

REACTIONS (15)
  - BLOOD ALBUMIN INCREASED [None]
  - HIGH DENSITY LIPOPROTEIN INCREASED [None]
  - STAPHYLOCOCCAL INFECTION [None]
  - BLOOD UREA INCREASED [None]
  - URINARY TRACT INFECTION [None]
  - ELECTROCARDIOGRAM ABNORMAL [None]
  - ABSCESS [None]
  - MONOCYTE COUNT DECREASED [None]
  - BLOOD GLUCOSE INCREASED [None]
  - DIVERTICULITIS [None]
  - RETINAL VEIN OCCLUSION [None]
  - HAEMOGLOBIN DECREASED [None]
  - GLOBULINS INCREASED [None]
  - BRADYCARDIA [None]
  - RADIAL NERVE PALSY [None]
